FAERS Safety Report 14360185 (Version 2)
Quarter: 2018Q1

REPORT INFORMATION
  Report Type: Spontaneous
  Country: FR (occurrence: FR)
  Receive Date: 20180106
  Receipt Date: 20180117
  Transmission Date: 20180509
  Serious: Yes (Hospitalization)
  Sender: FDA-Public Use
  Company Number: FR-009507513-1801FRA000779

PATIENT
  Age: 33 Year
  Sex: Female
  Weight: 48 kg

DRUGS (1)
  1. LISINOPRIL (+) HYDROCHLOROTHIAZIDE [Suspect]
     Active Substance: HYDROCHLOROTHIAZIDE\LISINOPRIL
     Indication: HYPERTENSION
     Dosage: ANHYDROUS, UNK
     Route: 048
     Dates: start: 20151201, end: 20171205

REACTIONS (3)
  - Abdominal pain [Recovered/Resolved]
  - Angioedema [Recovering/Resolving]
  - Vomiting [Recovered/Resolved]

NARRATIVE: CASE EVENT DATE: 20171204
